FAERS Safety Report 8545853-0 (Version None)
Quarter: 2012Q3

REPORT INFORMATION
  Report Type: 
  Country: None (occurrence: None)
  Receive Date: 20120727
  Receipt Date: 20111115
  Transmission Date: 20120928
  Serious: No
  Sender: FDA-Public Use
  Company Number: US-ASTRAZENECA-2011SE69262

PATIENT
  Age: 24 Year
  Sex: Female
  Weight: 142.9 kg

DRUGS (2)
  1. SEROQUEL [Suspect]
     Indication: BIPOLAR DISORDER
     Route: 048
     Dates: start: 20110801
  2. PEPSID [Concomitant]
     Indication: DYSPEPSIA

REACTIONS (2)
  - MATERNAL EXPOSURE DURING PREGNANCY [None]
  - DYSPEPSIA [None]
